FAERS Safety Report 10774554 (Version 1)
Quarter: 2015Q1

REPORT INFORMATION
  Report Type: Spontaneous
  Country: IT (occurrence: None)
  Receive Date: 20150127
  Receipt Date: 20150127
  Transmission Date: 20150721
  Serious: Yes (Death, Hospitalization)
  Sender: FDA-Public Use
  Company Number: IG002635

PATIENT
  Age: 79 Year
  Sex: Male
  Weight: 80 kg

DRUGS (7)
  1. TRIATEC /00116401/ [Concomitant]
     Active Substance: HYDROCHLOROTHIAZIDE
  2. FOLINA /00024201/ [Concomitant]
     Active Substance: FOLIC ACID
  3. CARDIOASPIRIN [Concomitant]
     Active Substance: ASPIRIN
  4. FLEBOGAMMA DIF [Suspect]
     Active Substance: HUMAN IMMUNOGLOBULIN G
     Indication: DEMYELINATING POLYNEUROPATHY
     Route: 042
     Dates: start: 20141001, end: 20141001
  5. ANTRA /00661201/ [Concomitant]
     Active Substance: OMEPRAZOLE
  6. ALDACTONE [Concomitant]
     Active Substance: SPIRONOLACTONE
  7. CONGESCOR [Concomitant]
     Active Substance: BISOPROLOL

REACTIONS (8)
  - Troponin T increased [None]
  - Bundle branch block left [None]
  - Pruritus [None]
  - Infusion related reaction [None]
  - Blood glucose increased [None]
  - Acute pulmonary oedema [None]
  - Cardiac failure [None]
  - Blood sodium decreased [None]

NARRATIVE: CASE EVENT DATE: 20141001
